FAERS Safety Report 12436346 (Version 3)
Quarter: 2016Q2

REPORT INFORMATION
  Report Type: Spontaneous
  Country: FR (occurrence: FR)
  Receive Date: 20160605
  Receipt Date: 20160608
  Transmission Date: 20160815
  Serious: Yes (Life-Threatening, Hospitalization, Other)
  Sender: FDA-Public Use
  Company Number: FR-009507513-1606FRA001145

PATIENT
  Age: 78 Year
  Sex: Female

DRUGS (11)
  1. CACIT [Suspect]
     Active Substance: CALCIUM\VITAMIN D
     Indication: CALCIUM METABOLISM DISORDER
     Dosage: 1000 MG, QD (1/DAY)
     Route: 048
     Dates: end: 20160409
  2. INEGY [Suspect]
     Active Substance: EZETIMIBE\SIMVASTATIN
     Indication: DYSLIPIDAEMIA
     Dosage: 1 DF, QD (1/DAY)
     Route: 048
     Dates: end: 20160409
  3. RASILEZ [Suspect]
     Active Substance: ALISKIREN
     Indication: HYPERTENSION
     Dosage: 1 DF, QD (1/DAY)
     Route: 048
     Dates: end: 20160409
  4. ARANESP [Suspect]
     Active Substance: DARBEPOETIN ALFA
     Indication: ANAEMIA
     Dosage: 30 MICROGRAM, MONTHLY
     Route: 058
     Dates: end: 20160409
  5. DIFFU-K [Suspect]
     Active Substance: POTASSIUM CHLORIDE
     Indication: HYPOKALAEMIA
     Dosage: 1 DF, QD (1/DAY)
     Route: 048
     Dates: end: 20160409
  6. XELEVIA [Suspect]
     Active Substance: SITAGLIPTIN PHOSPHATE
     Indication: TYPE 2 DIABETES MELLITUS
     Dosage: 1 DF, QD (1/DAY)
     Route: 048
     Dates: end: 20160409
  7. RILMENIDINE [Suspect]
     Active Substance: RILMENIDINE
     Indication: HYPERTENSION
     Dosage: 1 DF, QD (1/DAY)
     Route: 048
     Dates: end: 20160409
  8. ADENURIC [Suspect]
     Active Substance: FEBUXOSTAT
     Indication: HYPERURICAEMIA
     Dosage: 1 DF, QD (1/DAY)
     Route: 048
     Dates: end: 20160409
  9. METFORMIN [Suspect]
     Active Substance: METFORMIN HYDROCHLORIDE
     Indication: TYPE 2 DIABETES MELLITUS
     Dosage: 1 DF, BID (2/DAY)
     Route: 048
     Dates: end: 20160409
  10. LASILIX [Suspect]
     Active Substance: FUROSEMIDE
     Indication: HYPERTENSION
     Dosage: 1 DF, QD (1/DAY)
     Route: 048
     Dates: end: 20160409
  11. CORDARONE [Suspect]
     Active Substance: AMIODARONE HYDROCHLORIDE
     Indication: ATRIAL FIBRILLATION
     Dosage: 0.714 DF, 5 IN 7 DAYS
     Route: 048
     Dates: end: 20160409

REACTIONS (9)
  - Vomiting [Unknown]
  - Lactic acidosis [Recovered/Resolved]
  - Acute kidney injury [Recovering/Resolving]
  - Cardio-respiratory arrest [Recovered/Resolved with Sequelae]
  - Diarrhoea [Unknown]
  - Abdominal pain [Unknown]
  - Hyperkalaemia [Recovered/Resolved]
  - Brain injury [Unknown]
  - General physical health deterioration [Unknown]

NARRATIVE: CASE EVENT DATE: 201604
